FAERS Safety Report 26218048 (Version 1)
Quarter: 2025Q4

REPORT INFORMATION
  Report Type: Spontaneous
  Country: GB (occurrence: GB)
  Receive Date: 20251231
  Receipt Date: 20251231
  Transmission Date: 20260118
  Serious: Yes (Other)
  Sender: TEVA
  Company Number: None

PATIENT
  Age: 88 Year
  Sex: Female
  Weight: 41 kg

DRUGS (9)
  1. ROSUVASTATIN [Suspect]
     Active Substance: ROSUVASTATIN
     Indication: Product used for unknown indication
     Dosage: TAKE ONE ON MONDAY, WEDNESDAY, FRIDAY - FOR CHO...
     Route: 065
  2. INCLISIRAN [Concomitant]
     Active Substance: INCLISIRAN
     Indication: Lipids
     Dosage: ADMINISTER
     Dates: start: 20230630
  3. NITROGLYCERIN [Concomitant]
     Active Substance: NITROGLYCERIN
     Indication: Product used for unknown indication
     Dosage: USE UNDER THE TONGUE AS DIRECTED WHEN...
     Dates: start: 20221205
  4. EZETIMIBE [Concomitant]
     Active Substance: EZETIMIBE
     Indication: Product used for unknown indication
     Dates: start: 20251223
  5. ALLEVYN GENTLE BORDER [Concomitant]
     Indication: Ill-defined disorder
     Dosage: (FOAM - BORDERED) -  USE AS DIRECTED - MAX QUAN...
     Dates: start: 20251118, end: 20251202
  6. OCTENILIN [Concomitant]
     Indication: Ill-defined disorder
     Dosage: (ANTIMICROBIAL IRRIGATION) - USE AS DIRECTED
     Dates: start: 20251118, end: 20251202
  7. FAMOTIDINE [Concomitant]
     Active Substance: FAMOTIDINE
     Indication: Product used for unknown indication
     Dates: start: 20240705
  8. LISINOPRIL [Concomitant]
     Active Substance: LISINOPRIL
     Indication: Product used for unknown indication
     Dates: start: 20230602
  9. FUROSEMIDE [Concomitant]
     Active Substance: FUROSEMIDE
     Indication: Product used for unknown indication
     Dosage: TAKE 40MG DAILY, AND 20MG DAILY ALTERNATE DAYS.
     Dates: start: 20241119

REACTIONS (2)
  - Abdominal discomfort [Recovered/Resolved]
  - Malaise [Unknown]
